FAERS Safety Report 4758960-5 (Version None)
Quarter: 2005Q3

REPORT INFORMATION
  Report Type: 
  Country: None (occurrence: None)
  Receive Date: 20050901
  Receipt Date: 20050708
  Transmission Date: 20060218
  Serious: Yes (Hospitalization)
  Sender: FDA-Public Use
  Company Number: US-SANOFI-SYNTHELABO-F03200500094

PATIENT
  Sex: Male

DRUGS (17)
  1. ELOXATIN [Suspect]
     Indication: COLORECTAL CANCER METASTATIC
     Route: 042
     Dates: start: 20050608, end: 20050608
  2. CETUXIMAB [Suspect]
     Indication: COLORECTAL CANCER METASTATIC
     Route: 042
     Dates: start: 20050615, end: 20050615
  3. FLUOROURACIL [Suspect]
     Indication: COLORECTAL CANCER METASTATIC
     Route: 042
     Dates: start: 20050608, end: 20050608
  4. LEUCOVORIN [Suspect]
     Route: 042
     Dates: start: 20050608, end: 20050608
  5. ARANESP [Concomitant]
     Dosage: UNK
     Route: 065
     Dates: start: 20050110
  6. CALCIUM GLUCONATE [Concomitant]
     Dosage: UNK
     Route: 065
     Dates: start: 20050427
  7. MAGNESIUM [Concomitant]
     Dosage: UNK
     Route: 042
     Dates: start: 20050427
  8. NEULASTA [Concomitant]
     Dosage: UNK
     Route: 065
     Dates: start: 20050126
  9. NEUMEGA [Concomitant]
     Dosage: UNK
     Route: 065
     Dates: start: 20050615, end: 20050617
  10. HYDROCODONE [Concomitant]
     Dosage: UNK
     Route: 065
  11. OMEPRAZOLE [Concomitant]
     Dosage: UNK
     Route: 065
  12. LISINOPRIL [Concomitant]
     Dosage: UNK
     Route: 065
  13. LOPERAMIDE [Concomitant]
     Dosage: UNK
     Route: 065
  14. SIMVASTATIN [Concomitant]
     Dosage: UNK
     Route: 065
  15. COMPAZINE [Concomitant]
     Dosage: UNK
     Route: 065
  16. MULTIVITAMIN [Concomitant]
     Dosage: UNK
     Route: 065
  17. DEXAMETHASONE [Concomitant]
     Dosage: UNK
     Route: 065

REACTIONS (5)
  - ASTHENIA [None]
  - BODY TEMPERATURE INCREASED [None]
  - FALL [None]
  - FATIGUE [None]
  - PANCYTOPENIA [None]
